FAERS Safety Report 7322897-8 (Version None)
Quarter: 2011Q1

REPORT INFORMATION
  Report Type: 
  Country: None (occurrence: None)
  Receive Date: 20110215
  Receipt Date: 20110204
  Transmission Date: 20110831
  Serious: Yes (Hospitalization, Other)
  Sender: FDA-Public Use
  Company Number: CLOF-1000121

PATIENT
  Age: 65 Year
  Sex: Female
  Weight: 62 kg

DRUGS (15)
  1. ATENOLOL [Concomitant]
  2. MOTRIN [Concomitant]
  3. CELEXA [Concomitant]
  4. ANTIFUNGALS [Concomitant]
  5. ANTIVIRALS NOS [Concomitant]
  6. CLOLAR [Suspect]
     Indication: B-CELL LYMPHOMA
     Dosage: 4 MG/M2, QDX5, INTRAVENOUS; 3 MG/M2, QDX5, INTRAVENOUS
     Route: 042
     Dates: start: 20080310, end: 20080314
  7. CLOLAR [Suspect]
     Indication: B-CELL LYMPHOMA
     Dosage: 4 MG/M2, QDX5, INTRAVENOUS; 3 MG/M2, QDX5, INTRAVENOUS
     Route: 042
     Dates: start: 20080211, end: 20080215
  8. BACTRIM (CO-TRIMOXAZOLE) TABLET [Concomitant]
  9. ZOCOR [Concomitant]
  10. ASPIRIN [Concomitant]
  11. HYDROCHLOROTHIAZIDE [Concomitant]
  12. XANAX [Concomitant]
  13. VICODIN [Concomitant]
  14. NEULASTA [Concomitant]
  15. CALCIUM (ASCORBIC ACID) [Concomitant]

REACTIONS (7)
  - RENAL FAILURE [None]
  - HAEMATOTOXICITY [None]
  - WHITE BLOOD CELL COUNT DECREASED [None]
  - THERAPEUTIC RESPONSE DECREASED [None]
  - ANAEMIA [None]
  - NEUTROPENIA [None]
  - THROMBOCYTOPENIA [None]
